FAERS Safety Report 23658330 (Version 1)
Quarter: 2024Q1

REPORT INFORMATION
  Report Type: Report from Study
  Country: US (occurrence: US)
  Receive Date: 20240321
  Receipt Date: 20240321
  Transmission Date: 20240410
  Serious: Yes (Other)
  Sender: FDA-Public Use
  Company Number: US-GILEAD-2024-0666516

PATIENT
  Age: 54 Year
  Sex: Female

DRUGS (4)
  1. AMBRISENTAN [Suspect]
     Active Substance: AMBRISENTAN
     Indication: Pulmonary arterial hypertension
     Dosage: 10 MG, QD
     Route: 065
     Dates: start: 201707
  2. TYVASO [Suspect]
     Active Substance: TREPROSTINIL
     Indication: Product used for unknown indication
     Dosage: 36 UG, QID
     Route: 065
     Dates: start: 202103
  3. TYVASO [Suspect]
     Active Substance: TREPROSTINIL
     Dosage: 6 BREATHS QID
     Route: 065
  4. ADCIRCA [Concomitant]
     Active Substance: TADALAFIL
     Dates: start: 202310

REACTIONS (3)
  - Coeliac disease [Unknown]
  - Nausea [Not Recovered/Not Resolved]
  - Illness [Unknown]
